FAERS Safety Report 9647772 (Version 1)
Quarter: 2013Q4

REPORT INFORMATION
  Report Type: Spontaneous
  Country: US (occurrence: US)
  Receive Date: 20131028
  Receipt Date: 20131028
  Transmission Date: 20140711
  Serious: No
  Sender: FDA-Public Use
  Company Number: US-PFIZER INC-2013303164

PATIENT
  Age: 46 Year
  Sex: Female
  Weight: 61.22 kg

DRUGS (3)
  1. PREMARIN [Suspect]
     Indication: ARTIFICIAL MENOPAUSE
     Dosage: 0.625 MG, 1X/DAY
     Dates: start: 1998, end: 20131003
  2. MAXZIDE [Suspect]
     Dosage: UNK
  3. DIAZEPAM [Concomitant]
     Dosage: 30 MG, 1X/DAY

REACTIONS (9)
  - Stress [Unknown]
  - Swelling [Unknown]
  - Fluid retention [Not Recovered/Not Resolved]
  - Alopecia [Recovering/Resolving]
  - Food allergy [Unknown]
  - Eating disorder [Unknown]
  - Gait disturbance [Unknown]
  - Oedema peripheral [Unknown]
  - Hormone level abnormal [Unknown]
